FAERS Safety Report 4662194-2 (Version None)
Quarter: 2005Q2

REPORT INFORMATION
  Report Type: 
  Country: None (occurrence: None)
  Receive Date: 20050516
  Receipt Date: 20050415
  Transmission Date: 20051028
  Serious: Yes (Hospitalization)
  Sender: FDA-Public Use
  Company Number: 200513189US

PATIENT
  Age: 58 Year
  Sex: Male
  Weight: 69.7 kg

DRUGS (4)
  1. TAXOTERE [Suspect]
     Indication: PANCREATIC CARCINOMA
     Route: 042
     Dates: start: 20050324, end: 20050324
  2. LOVENOX [Suspect]
     Indication: PANCREATIC CARCINOMA
     Route: 058
     Dates: start: 20050317, end: 20050428
  3. IRINOTECAN HCL [Suspect]
     Indication: PANCREATIC CARCINOMA
     Route: 042
     Dates: end: 20050324
  4. CETUXIMAB [Suspect]
     Indication: PANCREATIC CARCINOMA
     Route: 042
     Dates: start: 20050317, end: 20050428

REACTIONS (16)
  - ANOREXIA [None]
  - ASTHENIA [None]
  - BACK PAIN [None]
  - CONSTIPATION [None]
  - DEHYDRATION [None]
  - DISEASE PROGRESSION [None]
  - DYSPEPSIA [None]
  - DYSPNOEA [None]
  - FAILURE TO THRIVE [None]
  - FATIGUE [None]
  - HAEMORRHAGE [None]
  - LETHARGY [None]
  - MALAISE [None]
  - PERIPHERAL MOTOR NEUROPATHY [None]
  - PLEURAL EFFUSION [None]
  - WEIGHT DECREASED [None]
